FAERS Safety Report 8589233-0 (Version None)
Quarter: 2012Q3

REPORT INFORMATION
  Report Type: 
  Country: None (occurrence: None)
  Receive Date: 20120813
  Receipt Date: 20120810
  Transmission Date: 20120928
  Serious: Yes (Death)
  Sender: FDA-Public Use
  Company Number: JP-BAYER-2012-080427

PATIENT
  Age: 5 Year
  Sex: Female
  Weight: 23 kg

DRUGS (15)
  1. FUNGUARD [Concomitant]
     Dosage: UNK
     Route: 041
  2. ALBUMIN (HUMAN) [Concomitant]
     Route: 042
  3. CLINDAMYCIN [Concomitant]
     Dosage: UNK
  4. ZYVOX [Concomitant]
     Dosage: UNK
  5. CIPROFLOXACIN [Suspect]
     Indication: ABDOMINAL ABSCESS
     Dosage: DAILY DOSE 200 MG
     Route: 041
     Dates: start: 20101224, end: 20110104
  6. DOPAMINE HCL [Concomitant]
     Dosage: UNK
  7. SODIUM BICARBONATE [Concomitant]
     Dosage: UNK
     Route: 042
  8. HANP [Concomitant]
     Dosage: UNK
  9. HUMULIN R [Concomitant]
     Dosage: UNK
  10. CEFTAZIDIME SODIUM [Concomitant]
     Dosage: UNK
     Route: 042
  11. OMEPRAZOLE [Concomitant]
     Dosage: UNK
  12. LASIX [Concomitant]
     Dosage: UNK
  13. FAMOTIDINE [Concomitant]
     Dosage: UNK
  14. HYDROCORTONE [Concomitant]
     Dosage: UNK
  15. SOLDACTONE [Concomitant]
     Dosage: UNK
     Route: 042

REACTIONS (1)
  - URINE OUTPUT DECREASED [None]
